FAERS Safety Report 5287270-5 (Version None)
Quarter: 2007Q2

REPORT INFORMATION
  Report Type: 
  Country: None (occurrence: None)
  Receive Date: 20070404
  Receipt Date: 20070323
  Transmission Date: 20071010
  Serious: Yes (Other)
  Sender: FDA-Public Use
  Company Number: GB-PFIZER INC-2007024356

PATIENT
  Sex: Female

DRUGS (1)
  1. PROVERA [Suspect]
     Indication: UTERINE CANCER
     Dosage: DAILY DOSE:300MG
     Route: 048

REACTIONS (2)
  - CONDITION AGGRAVATED [None]
  - UTERINE CANCER [None]
